FAERS Safety Report 8832858 (Version 1)
Quarter: 2012Q4

REPORT INFORMATION
  Report Type: 
  Country: DE (occurrence: DE)
  Receive Date: 20121009
  Receipt Date: 20121009
  Transmission Date: 20130627
  Serious: Yes (Life-Threatening, Hospitalization)
  Sender: FDA-Public Use
  Company Number: DE-BRISTOL-MYERS SQUIBB COMPANY-17008962

PATIENT
  Age: 45 Year
  Sex: Female
  Weight: 59 kg

DRUGS (1)
  1. BELATACEPT [Suspect]
     Indication: PROPHYLAXIS AGAINST TRANSPLANT REJECTION
     Dosage: cumulative dose-91759mg
     Route: 042
     Dates: start: 201108, end: 201208

REACTIONS (1)
  - Thrombotic thrombocytopenic purpura [Recovered/Resolved]
